FAERS Safety Report 13545231 (Version 2)
Quarter: 2017Q2

REPORT INFORMATION
  Report Type: Spontaneous
  Country: SE (occurrence: SE)
  Receive Date: 20170515
  Receipt Date: 20170519
  Transmission Date: 20170830
  Serious: Yes (Life-Threatening)
  Sender: FDA-Public Use
  Company Number: SE-MYLANLABS-2017M1027686

PATIENT

DRUGS (3)
  1. DESLORATADIN MYLAN 5 MG FILMDRAGERADE TABLETTER [Suspect]
     Active Substance: DESLORATADINE
     Indication: MILK ALLERGY
     Dosage: 5 MG, UNK
     Dates: start: 201702, end: 20170420
  2. LEVAXIN [Concomitant]
     Active Substance: LEVOTHYROXINE SODIUM
     Indication: PRODUCT USED FOR UNKNOWN INDICATION
     Dosage: 75 MG, UNK
  3. DESLORATADIN MYLAN 5 MG FILMDRAGERADE TABLETTER [Suspect]
     Active Substance: DESLORATADINE
     Indication: FOOD ALLERGY

REACTIONS (10)
  - Asthenia [Recovered/Resolved]
  - Visual impairment [Recovered/Resolved]
  - Body temperature fluctuation [Recovered/Resolved]
  - Tremor [Recovered/Resolved]
  - Mental disorder [Recovered/Resolved]
  - Visual field defect [Recovered/Resolved]
  - Confusional state [Recovered/Resolved]
  - Dizziness [Not Recovered/Not Resolved]
  - Derealisation [Recovered/Resolved]
  - Fear [Recovered/Resolved]
